FAERS Safety Report 8366074-0 (Version None)
Quarter: 2012Q2

REPORT INFORMATION
  Report Type: 
  Country: None (occurrence: None)
  Receive Date: 20120517
  Receipt Date: 20120509
  Transmission Date: 20120825
  Serious: Yes (Life-Threatening)
  Sender: FDA-Public Use
  Company Number: JP-ELI_LILLY_AND_COMPANY-JP201204010187

PATIENT
  Sex: Male
  Weight: 53 kg

DRUGS (15)
  1. OLMESARTAN MEDOXOMIL [Concomitant]
     Dosage: 20 MG, QD
     Route: 048
  2. PLAVIX [Concomitant]
     Dosage: 75 MG, QD
     Route: 048
  3. CYMBALTA [Suspect]
     Dosage: 30 MG, QD
     Route: 048
  4. KALIMATE [Concomitant]
     Dosage: 5 G, QD
     Route: 048
  5. MAGNESIUM OXIDE [Concomitant]
     Dosage: 1 G, TID
  6. ZETIA [Concomitant]
     Dosage: 10 MG, QD
     Route: 048
  7. PLETAL [Concomitant]
     Dosage: 100 MG, BID
     Route: 048
  8. DEZOLAM [Concomitant]
     Dosage: 0.5 MG, TID
     Route: 048
  9. EPEL [Concomitant]
     Dosage: 50 MG, TID
     Route: 048
  10. TEGRETOL [Concomitant]
     Dosage: 100 MG, BID
     Route: 048
  11. LACTEC [Concomitant]
     Dosage: UNK
     Route: 042
     Dates: start: 20120412
  12. SEFTAC [Concomitant]
     Dosage: 50 MG, TID
     Route: 048
  13. OLMESARTAN MEDOXOMIL [Concomitant]
     Dosage: UNK, QD
     Route: 048
  14. FLUMARIN [Concomitant]
     Indication: PYELONEPHRITIS
     Dosage: 1 G, QD
     Route: 042
     Dates: start: 20120412, end: 20120412
  15. DICLOFENAC SODIUM [Concomitant]
     Dosage: 25 MG, UNK
     Route: 054
     Dates: start: 20120412

REACTIONS (1)
  - SHOCK [None]
